FAERS Safety Report 25542055 (Version 2)
Quarter: 2025Q4

REPORT INFORMATION
  Report Type: Spontaneous
  Country: US (occurrence: US)
  Receive Date: 20250711
  Receipt Date: 20251120
  Transmission Date: 20260118
  Serious: Yes (Other)
  Sender: NOVO NORDISK
  Company Number: US-NOVOPROD-1474729

PATIENT
  Age: 54 Year
  Sex: Female

DRUGS (24)
  1. LEVEMIR [Suspect]
     Active Substance: INSULIN DETEMIR
     Indication: Type 1 diabetes mellitus
     Dosage: 14 IU, BID
     Route: 058
  2. TRESIBA [Suspect]
     Active Substance: INSULIN DEGLUDEC
     Indication: Type 1 diabetes mellitus
     Dosage: 24 IU, QD (EVERY MORNING)
     Route: 058
     Dates: start: 2023
  3. FLEXERIL [Concomitant]
     Active Substance: CYCLOBENZAPRINE HYDROCHLORIDE
     Indication: Product used for unknown indication
     Dosage: 20 MG
  4. LIPITOR [Concomitant]
     Active Substance: ATORVASTATIN CALCIUM
     Indication: Product used for unknown indication
     Dosage: 20 MG, QD
     Route: 048
  5. LIPITOR [Concomitant]
     Active Substance: ATORVASTATIN CALCIUM
     Dosage: 40 MG, QD
     Route: 048
  6. PROZAC [Concomitant]
     Active Substance: FLUOXETINE HYDROCHLORIDE
     Indication: Depression
     Dosage: 60 MG, QD
     Route: 048
  7. STRATTERA [Concomitant]
     Active Substance: ATOMOXETINE HYDROCHLORIDE
     Indication: Attention deficit hyperactivity disorder
     Dosage: 25 MG, QD
     Route: 048
  8. PRINIVIL [Concomitant]
     Active Substance: LISINOPRIL
     Indication: Product used for unknown indication
     Dosage: 5 MG, QD
     Route: 048
  9. ZESTRIL [Concomitant]
     Active Substance: LISINOPRIL
     Indication: Product used for unknown indication
     Dosage: 5 MG, QD
     Route: 048
  10. RANEXA [Concomitant]
     Active Substance: RANOLAZINE
     Indication: Product used for unknown indication
     Dosage: 1500 MG, QD
     Route: 048
  11. PROTONIX [Concomitant]
     Active Substance: PANTOPRAZOLE SODIUM
     Indication: Product used for unknown indication
     Dosage: 40 MG, QD
     Route: 048
  12. ULTRACET [Concomitant]
     Active Substance: ACETAMINOPHEN\TRAMADOL HYDROCHLORIDE
     Indication: Pain
     Dosage: 37.5-325 MG EVERY 6 HOURS AS NEEDED
     Route: 048
  13. ASPIRIN [Concomitant]
     Active Substance: ASPIRIN
     Indication: Product used for unknown indication
     Dosage: 81 MG, QD
     Route: 048
  14. THERAGRAN [VITAMINS NOS] [Concomitant]
     Indication: Product used for unknown indication
     Dosage: UNK
  15. IMDUR [Concomitant]
     Active Substance: ISOSORBIDE MONONITRATE
     Indication: Product used for unknown indication
     Dosage: 30 MG, QD
     Route: 048
  16. ZETIA [Concomitant]
     Active Substance: EZETIMIBE
     Indication: Product used for unknown indication
     Dosage: 10 MG, QD
     Route: 048
  17. DERMA-SMOOTHE/FS [Concomitant]
     Active Substance: FLUOCINOLONE ACETONIDE
     Indication: Pruritus
     Dosage: 1-2 DROPS ON AFFECTED AREAS ON SCALP AN MASSAGE TWICE DAILY AS NEEDED FOR 6-8 WEEKS
     Route: 003
     Dates: end: 202504
  18. OLUX [Concomitant]
     Active Substance: CLOBETASOL PROPIONATE
     Indication: Pruritus
     Dosage: APPLY TOPICALLY TO AFFECTED AREAS ON THE SCALP TWICE DAILY AS NEEDED
     Route: 003
     Dates: end: 201606
  19. COREG [Concomitant]
     Active Substance: CARVEDILOL
     Indication: Product used for unknown indication
     Dosage: 37.5 MG, QD
     Route: 048
  20. NITROSTAT [Concomitant]
     Active Substance: NITROGLYCERIN
     Indication: Chest pain
     Dosage: 0.4 MG (EVERY 5 MINUTES AS NEEDED)
     Route: 060
  21. GLUCAGON [Concomitant]
     Active Substance: GLUCAGON
     Indication: Product used for unknown indication
     Dosage: 1 MG, QD
     Route: 048
  22. PENLAC [CICLOPIROX] [Concomitant]
     Indication: Product used for unknown indication
     Dosage: 1 MG, QD (OVER NAIL AND SURROUNDING SKIN NIGHTLY. AFTER 7 DAYS, MAY REMOVE WITH ALCOHOL AND CONTINUE
     Route: 061
  23. NOVOLOG [Suspect]
     Active Substance: INSULIN ASPART
     Dosage: 13 IU, TID (WITH MEALS)
  24. NOVOLOG [Suspect]
     Active Substance: INSULIN ASPART
     Indication: Type 1 diabetes mellitus
     Dosage: 6 IU, TID (WITH MEALS)

REACTIONS (7)
  - Lens dislocation [Unknown]
  - Blindness unilateral [Unknown]
  - Diabetes mellitus inadequate control [Unknown]
  - Altered visual depth perception [Unknown]
  - Depression [Unknown]
  - Attention deficit hyperactivity disorder [Unknown]
  - Hypoglycaemia [Unknown]
